FAERS Safety Report 17662039 (Version 1)
Quarter: 2020Q2

REPORT INFORMATION
  Report Type: Spontaneous
  Country: AU (occurrence: AU)
  Receive Date: 20200413
  Receipt Date: 20200413
  Transmission Date: 20200713
  Serious: Yes (Hospitalization)
  Sender: FDA-Public Use
  Company Number: AU-009507513-2004AUS002156

PATIENT
  Age: 37 Year
  Sex: Female

DRUGS (7)
  1. GONAL-F [Suspect]
     Active Substance: FOLLITROPIN
  2. ELEVIT [Concomitant]
     Active Substance: FOLIC ACID\IRON\MINERALS\VITAMINS
  3. ORGALUTRAN [Suspect]
     Active Substance: GANIRELIX ACETATE
  4. CHOLECALCIFEROL [Concomitant]
     Active Substance: CHOLECALCIFEROL
  5. OVIDREL [Suspect]
     Active Substance: CHORIOGONADOTROPIN ALFA
  6. PROGESTERONE. [Concomitant]
     Active Substance: PROGESTERONE
  7. LEVOTHYROXINE SODIUM. [Concomitant]
     Active Substance: LEVOTHYROXINE SODIUM

REACTIONS (3)
  - Ascites [Unknown]
  - Pleural effusion [Unknown]
  - Dyspnoea [Unknown]
